FAERS Safety Report 14587788 (Version 2)
Quarter: 2018Q1

REPORT INFORMATION
  Report Type: Report from Study
  Country: CZ (occurrence: CZ)
  Receive Date: 20180301
  Receipt Date: 20180312
  Transmission Date: 20180509
  Serious: Yes (Hospitalization, Other)
  Sender: FDA-Public Use
  Company Number: CZ-JNJFOC-20180232756

PATIENT
  Age: 76 Year
  Sex: Female
  Weight: 50 kg

DRUGS (12)
  1. TALVOSILEN [Concomitant]
     Active Substance: ACETAMINOPHEN\CODEINE PHOSPHATE
     Dosage: AS NECESSARY
     Route: 065
  2. CLEXANE [Concomitant]
     Active Substance: ENOXAPARIN SODIUM
     Route: 065
  3. SIMPONI [Suspect]
     Active Substance: GOLIMUMAB
     Indication: RHEUMATOID ARTHRITIS
     Route: 058
     Dates: start: 20120420
  4. VIGANTOL [Concomitant]
     Active Substance: CHOLECALCIFEROL
     Route: 065
  5. TORVAZIN [Concomitant]
     Route: 065
  6. RAMIL [Concomitant]
     Route: 065
  7. HERPESIN [Concomitant]
     Route: 065
  8. RYTMONORM [Concomitant]
     Active Substance: PROPAFENONE
     Route: 065
  9. EUTHYROX [Concomitant]
     Active Substance: LEVOTHYROXINE SODIUM
     Dosage: 100UG BID ON MONDAY, QD THE REST OF THE WEEK
     Route: 065
  10. CALTRATE [Concomitant]
     Active Substance: CALCIUM CARBONATE
     Route: 065
  11. AMOXICILLIN TRIHYDRATE [Concomitant]
     Active Substance: AMOXICILLIN
     Route: 065
  12. HELICID [Concomitant]
     Active Substance: OMEPRAZOLE
     Route: 065

REACTIONS (2)
  - Urinary tract infection [Recovered/Resolved]
  - Urethral stenosis [Unknown]

NARRATIVE: CASE EVENT DATE: 20180205
